FAERS Safety Report 5814709-6 (Version None)
Quarter: 2008Q3

REPORT INFORMATION
  Report Type: 
  Country: None (occurrence: None)
  Receive Date: 20080718
  Receipt Date: 20080424
  Transmission Date: 20090109
  Serious: No
  Sender: FDA-Public Use
  Company Number: US-KINGPHARMUSA00001-K200800496

PATIENT

DRUGS (3)
  1. LEVOXYL [Suspect]
     Indication: HYPOTHYROIDISM
     Dosage: 12.5 MCG, BID
     Route: 048
  2. ACIPHEX [Concomitant]
     Indication: HIATUS HERNIA
     Dosage: UNK, UNK
  3. ORAL CONTRACEPTIVE NOS [Concomitant]
     Route: 048

REACTIONS (2)
  - CHEST PAIN [None]
  - DYSPEPSIA [None]
